FAERS Safety Report 11966754 (Version 1)
Quarter: 2016Q1

REPORT INFORMATION
  Report Type: Spontaneous
  Country: US (occurrence: US)
  Receive Date: 20160127
  Receipt Date: 20160127
  Transmission Date: 20160526
  Serious: Yes (Hospitalization)
  Sender: FDA-Public Use
  Company Number: US-ASTRAZENECA-2015SE03276

PATIENT
  Age: 708 Month
  Sex: Female

DRUGS (26)
  1. NASONEX [Concomitant]
     Active Substance: MOMETASONE FUROATE
     Indication: MULTIPLE ALLERGIES
     Dosage: 2 SPRAYS ONCE A DAY
     Route: 045
  2. PROAIR HFA [Concomitant]
     Active Substance: ALBUTEROL SULFATE
     Indication: ASTHMA
     Dosage: 2 PUFFS EVERY 4 HOURS AS NEEDED
     Route: 055
     Dates: start: 2000
  3. MECLEZINE [Concomitant]
     Indication: VERTIGO
     Dosage: 1225 THREE TIMES A DAY
     Route: 048
     Dates: start: 201409
  4. MAG 6040 [Concomitant]
     Indication: BLOOD MAGNESIUM DECREASED
     Dosage: DAILY
     Route: 048
  5. HUMALOG [Concomitant]
     Active Substance: INSULIN LISPRO
     Indication: DIABETES MELLITUS
     Dosage: 6 UNITS FOR BREAKFAST, AT LUNCH AND AT DINNER TIME. SHE TAKES MORE AS INDICATED WITH A SLIDING SCALE
     Route: 058
  6. GABAPENTIN. [Concomitant]
     Active Substance: GABAPENTIN
     Indication: FIBROMYALGIA
     Route: 048
  7. VITAMIN B12 [Concomitant]
     Active Substance: CYANOCOBALAMIN
     Indication: SUPPLEMENTATION THERAPY
     Route: 058
  8. CYCLOBENZAPRINE [Concomitant]
     Active Substance: CYCLOBENZAPRINE
     Route: 048
  9. VENLAFAXINE HYDROCHLORIDE. [Concomitant]
     Active Substance: VENLAFAXINE HYDROCHLORIDE
     Indication: MYALGIA
     Route: 048
     Dates: start: 2000, end: 2007
  10. CYMBALTA [Concomitant]
     Active Substance: DULOXETINE HYDROCHLORIDE
     Indication: MYALGIA
     Dosage: DAILY
     Route: 048
     Dates: start: 2007
  11. LEVOTHYROXINE SODIUM. [Concomitant]
     Active Substance: LEVOTHYROXINE SODIUM
     Dosage: 150MCG TABLET EARLY IN MORNING, BEFORE OTHER MEDICATIONS ON MONDAY, WEDNESDAY, FRIDAY AND SATURDAY
     Route: 048
  12. DICYCLOMINE [Concomitant]
     Active Substance: DICYCLOMINE HYDROCHLORIDE
     Indication: IRRITABLE BOWEL SYNDROME
     Route: 048
  13. OMEPRAZOLE. [Suspect]
     Active Substance: OMEPRAZOLE
     Route: 048
  14. PROAIR HFA [Concomitant]
     Active Substance: ALBUTEROL SULFATE
     Indication: CHRONIC OBSTRUCTIVE PULMONARY DISEASE
     Dosage: 2 PUFFS EVERY 4 HOURS AS NEEDED
     Route: 055
     Dates: start: 2000
  15. VITAMINS NOS [Concomitant]
     Active Substance: VITAMINS
     Indication: SUPPLEMENTATION THERAPY
     Route: 048
  16. FOLIC ACID. [Concomitant]
     Active Substance: FOLIC ACID
     Route: 048
  17. BYDUREON [Suspect]
     Active Substance: EXENATIDE
     Indication: DIABETES MELLITUS
     Route: 058
     Dates: start: 201409, end: 201511
  18. PROAIR HFA [Concomitant]
     Active Substance: ALBUTEROL SULFATE
     Indication: MULTIPLE ALLERGIES
     Dosage: 2 PUFFS EVERY 4 HOURS AS NEEDED
     Route: 055
     Dates: start: 2000
  19. LOPERAMIDE [Concomitant]
     Active Substance: LOPERAMIDE
     Indication: IRRITABLE BOWEL SYNDROME
  20. NORCO [Concomitant]
     Active Substance: ACETAMINOPHEN\HYDROCODONE BITARTRATE
     Indication: FIBROMYALGIA
     Dosage: 5/320 2 TABLETS , TWICE A DAY
     Route: 048
  21. CYMBALTA [Concomitant]
     Active Substance: DULOXETINE HYDROCHLORIDE
     Indication: FIBROMYALGIA
     Dosage: DAILY
     Route: 048
     Dates: start: 2007
  22. SPIRIVA [Concomitant]
     Active Substance: TIOTROPIUM BROMIDE MONOHYDRATE
     Route: 055
  23. EXENATIDE [Suspect]
     Active Substance: EXENATIDE
     Indication: PRODUCT USED FOR UNKNOWN INDICATION
     Route: 058
  24. LEVOTHYROXINE SODIUM. [Concomitant]
     Active Substance: LEVOTHYROXINE SODIUM
     Dosage: 137.5MCG ON TUESDAYS THURSDAYS AND SUNDAYS
  25. LANTUS [Concomitant]
     Active Substance: INSULIN GLARGINE
     Indication: DIABETES MELLITUS
     Dosage: 30 UNITS, DAILY
     Route: 058
  26. VENLAFAXINE HYDROCHLORIDE. [Concomitant]
     Active Substance: VENLAFAXINE HYDROCHLORIDE
     Indication: FIBROMYALGIA
     Route: 048
     Dates: start: 2000, end: 2007

REACTIONS (3)
  - Liver disorder [Unknown]
  - Pneumonia [Recovered/Resolved]
  - Drug dose omission [Not Recovered/Not Resolved]

NARRATIVE: CASE EVENT DATE: 201408
